FAERS Safety Report 5663589-0 (Version None)
Quarter: 2008Q1

REPORT INFORMATION
  Report Type: 
  Country: None (occurrence: None)
  Receive Date: 20080310
  Receipt Date: 20080228
  Transmission Date: 20080703
  Serious: Yes (Hospitalization, Other)
  Sender: FDA-Public Use
  Company Number: 2006-01-0182

PATIENT
  Age: 36 Year
  Sex: Female
  Weight: 61.2356 kg

DRUGS (4)
  1. TEMODAR [Suspect]
     Indication: METASTATIC MALIGNANT MELANOMA
     Dosage: 360 MG; PO
     Route: 048
     Dates: start: 20050501, end: 20050601
  2. TEMODAR [Suspect]
     Indication: METASTATIC MALIGNANT MELANOMA
     Dosage: 360 MG; PO
     Route: 048
     Dates: start: 20050909, end: 20050914
  3. STEROIDS (NOS) [Suspect]
     Indication: RASH ERYTHEMATOUS
  4. VITAMIN TAB [Concomitant]

REACTIONS (9)
  - ADRENAL INSUFFICIENCY [None]
  - ANAEMIA HAEMOLYTIC AUTOIMMUNE [None]
  - BLOOD CULTURE POSITIVE [None]
  - DERMATITIS [None]
  - DRUG ERUPTION [None]
  - EXFOLIATIVE RASH [None]
  - FLUID RETENTION [None]
  - GENERALISED OEDEMA [None]
  - STAPHYLOCOCCAL INFECTION [None]
